FAERS Safety Report 21959213 (Version 5)
Quarter: 2023Q2

REPORT INFORMATION
  Report Type: Report from Study
  Country: DE (occurrence: None)
  Receive Date: 20230206
  Receipt Date: 20230411
  Transmission Date: 20230722
  Serious: Yes (Hospitalization)
  Sender: FDA-Public Use
  Company Number: DE-ROCHE-3271994

PATIENT
  Age: 59 Year
  Sex: Male
  Weight: 113 kg

DRUGS (22)
  1. OCRELIZUMAB [Suspect]
     Active Substance: OCRELIZUMAB
     Indication: Progressive multiple sclerosis
     Dosage: DOSE OF LAST OCRELIZUMAB ADMINISTERED PRIOR TO THIS SAE ONSET: 600 MG, DATE OF MOST RECENT DOSE 21/S
     Route: 042
     Dates: start: 20220317
  2. RAMIPRIL [Concomitant]
     Active Substance: RAMIPRIL
  3. BISOPROLOL [Concomitant]
     Active Substance: BISOPROLOL
  4. VENLAFAXINE [Concomitant]
     Active Substance: VENLAFAXINE HYDROCHLORIDE
  5. PANTOPRAZOLE SODIUM [Concomitant]
     Active Substance: PANTOPRAZOLE SODIUM
     Indication: Gastrointestinal disorder prophylaxis
  6. XARELTO [Concomitant]
     Active Substance: RIVAROXABAN
  7. SIMVASTATIN [Concomitant]
     Active Substance: SIMVASTATIN
  8. NOVORAPID [Concomitant]
     Active Substance: INSULIN ASPART
  9. ACETAMINOPHEN [Concomitant]
     Active Substance: ACETAMINOPHEN
  10. AMOXICILLIN [Concomitant]
     Active Substance: AMOXICILLIN
  11. CLAVULANIC ACID [Concomitant]
     Active Substance: CLAVULANIC ACID
  12. METHYLPREDNISOLONE [Concomitant]
     Active Substance: METHYLPREDNISOLONE
     Route: 042
     Dates: start: 20220317, end: 20220317
  13. METHYLPREDNISOLONE [Concomitant]
     Active Substance: METHYLPREDNISOLONE
     Route: 042
     Dates: start: 20220331, end: 20220331
  14. METHYLPREDNISOLONE [Concomitant]
     Active Substance: METHYLPREDNISOLONE
     Route: 042
     Dates: start: 20220921, end: 20220921
  15. METHYLPREDNISOLONE [Concomitant]
     Active Substance: METHYLPREDNISOLONE
     Route: 042
     Dates: start: 20230316, end: 20230316
  16. DEXAMETHASONE [Concomitant]
     Active Substance: DEXAMETHASONE
     Indication: COVID-19 pneumonia
     Route: 048
     Dates: start: 20230106, end: 20230116
  17. LANTUS [Concomitant]
     Active Substance: INSULIN GLARGINE
     Indication: Diabetes mellitus
     Route: 058
     Dates: start: 20230130
  18. DULOXETINE [Concomitant]
     Active Substance: DULOXETINE
     Indication: Depression
     Route: 048
     Dates: start: 20230201
  19. TROSPIUM CHLORIDE [Concomitant]
     Active Substance: TROSPIUM CHLORIDE
     Indication: Multiple sclerosis
     Route: 048
     Dates: start: 20230124
  20. PIPERACILLIN AND TAZOBACTAM [Concomitant]
     Active Substance: PIPERACILLIN SODIUM\TAZOBACTAM SODIUM
     Indication: Urinary tract infection
     Route: 042
     Dates: start: 20230106, end: 20230112
  21. OXYGEN [Concomitant]
     Active Substance: OXYGEN
     Indication: COVID-19 pneumonia
     Dosage: DOSE: 1.5 INHALATION
     Route: 055
     Dates: start: 20230106, end: 20230112
  22. INSULIN HUMAN [Concomitant]
     Active Substance: INSULIN HUMAN
     Indication: Diabetes mellitus
     Route: 030
     Dates: start: 20230316, end: 20230316

REACTIONS (1)
  - Escherichia sepsis [Recovered/Resolved]

NARRATIVE: CASE EVENT DATE: 20230124
